FAERS Safety Report 11539120 (Version 1)
Quarter: 2015Q3

REPORT INFORMATION
  Report Type: Spontaneous
  Country: US (occurrence: None)
  Receive Date: 20150922
  Receipt Date: 20150922
  Transmission Date: 20151125
  Serious: No
  Sender: FDA-Public Use
  Company Number: None

PATIENT
  Age: 73 Year
  Sex: Female
  Weight: 77.11 kg

DRUGS (8)
  1. OMEZPRAZOLE [Concomitant]
  2. AYR [Concomitant]
  3. CLARITIN-D 12 HOUR [Concomitant]
     Active Substance: LORATADINE\PSEUDOEPHEDRINE SULFATE
  4. CREST 3D WHITE BRILLIANCE DAILY CLEANSING AND WHITENING SYSTEM [Suspect]
     Active Substance: STANNOUS FLUORIDE
     Indication: DENTAL DISORDER PROPHYLAXIS
  5. LEVOTHOROXIN [Concomitant]
  6. WARFARIN [Concomitant]
     Active Substance: WARFARIN
  7. METOPROLOL [Concomitant]
     Active Substance: METOPROLOL
  8. NASACORT [Concomitant]
     Active Substance: TRIAMCINOLONE ACETONIDE

REACTIONS (4)
  - Dysgeusia [None]
  - Cheilitis [None]
  - Glossitis [None]
  - Noninfective gingivitis [None]

NARRATIVE: CASE EVENT DATE: 20150920
